FAERS Safety Report 18985577 (Version 1)
Quarter: 2021Q1

REPORT INFORMATION
  Report Type: Spontaneous
  Country: CZ (occurrence: CZ)
  Receive Date: 20210309
  Receipt Date: 20210309
  Transmission Date: 20210420
  Serious: Yes (Death, Life-Threatening, Hospitalization, Disabling, Other)
  Sender: FDA-Public Use
  Company Number: CZ-PFIZER INC-2021242894

PATIENT
  Age: 71 Year
  Sex: Female
  Weight: 80 kg

DRUGS (2)
  1. CARZAP [Concomitant]
     Indication: HYPERTENSION
     Dosage: 1X/DAY 1?0?0
     Route: 048
     Dates: end: 20210110
  2. XELJANZ [Suspect]
     Active Substance: TOFACITINIB CITRATE
     Indication: RHEUMATOID ARTHRITIS
     Dosage: FREQ:12 H;1?0?1 TBL
     Route: 048
     Dates: start: 20180328, end: 20201229

REACTIONS (3)
  - Lung neoplasm malignant [Fatal]
  - Dyspnoea [Recovered/Resolved]
  - Cough [Recovered/Resolved]

NARRATIVE: CASE EVENT DATE: 20201016
